FAERS Safety Report 22046033 (Version 3)
Quarter: 2023Q2

REPORT INFORMATION
  Report Type: Report from Study
  Country: US (occurrence: US)
  Receive Date: 20230228
  Receipt Date: 20230602
  Transmission Date: 20230721
  Serious: Yes (Other)
  Sender: FDA-Public Use
  Company Number: US-INCYTE CORPORATION-2023IN000615

PATIENT

DRUGS (1)
  1. JAKAFI [Suspect]
     Active Substance: RUXOLITINIB
     Indication: Myelofibrosis
     Dosage: 10 MILLIGRAM, BID
     Route: 065

REACTIONS (7)
  - Haemorrhage [Unknown]
  - Arthritis [Not Recovered/Not Resolved]
  - Spinal stenosis [Not Recovered/Not Resolved]
  - Movement disorder [Unknown]
  - Dysstasia [Unknown]
  - Peripheral swelling [Unknown]
  - Back disorder [Unknown]

NARRATIVE: CASE EVENT DATE: 20230501
